FAERS Safety Report 8075294-4 (Version None)
Quarter: 2012Q1

REPORT INFORMATION
  Report Type: 
  Country: None (occurrence: None)
  Receive Date: 20120127
  Receipt Date: 20120119
  Transmission Date: 20120608
  Serious: Yes (Hospitalization)
  Sender: FDA-Public Use
  Company Number: US-BAYER-2011-040133

PATIENT
  Age: 20 Year
  Sex: Female
  Weight: 59 kg

DRUGS (5)
  1. SYNTHROID [Concomitant]
     Indication: HYPOTHYROIDISM
     Dosage: 50 MCG/24HR, QD
     Route: 048
     Dates: start: 19960101
  2. YASMIN [Suspect]
     Indication: CONTRACEPTION
     Dosage: UNK
     Dates: start: 20030213, end: 20060519
  3. MEPROZINE [Concomitant]
     Dosage: 50 MG, UNK
     Route: 048
     Dates: start: 20060510
  4. IBUPROFEN [Concomitant]
  5. PENICILLIN VK [Concomitant]
     Dosage: 500 MG, UNK
     Route: 048
     Dates: start: 20060510

REACTIONS (7)
  - ANXIETY [None]
  - EMOTIONAL DISTRESS [None]
  - NERVE INJURY [None]
  - PAIN IN EXTREMITY [None]
  - DEEP VEIN THROMBOSIS [None]
  - MUSCLE INJURY [None]
  - GENERAL PHYSICAL HEALTH DETERIORATION [None]
